FAERS Safety Report 24371797 (Version 1)
Quarter: 2024Q3

REPORT INFORMATION
  Report Type: Spontaneous
  Country: CN (occurrence: CN)
  Receive Date: 20240927
  Receipt Date: 20240927
  Transmission Date: 20241016
  Serious: Yes (Hospitalization)
  Sender: BEIGENE
  Company Number: CN-BEIGENE-BGN-2024-014939

PATIENT

DRUGS (1)
  1. TISLELIZUMAB [Suspect]
     Active Substance: TISLELIZUMAB
     Indication: Oesophageal carcinoma
     Dosage: 200 MILLIGRAM, Q3WK
     Route: 041
     Dates: start: 20240802, end: 20240802

REACTIONS (9)
  - Dyspnoea [Recovering/Resolving]
  - Erythema of eyelid [Recovered/Resolved]
  - Swelling of eyelid [Recovered/Resolved]
  - Lip swelling [Recovered/Resolved]
  - Hypoaesthesia oral [Recovered/Resolved]
  - Nausea [Recovered/Resolved]
  - Vomiting [Recovered/Resolved]
  - Oxygen saturation decreased [Recovered/Resolved]
  - Heart rate increased [Recovered/Resolved]

NARRATIVE: CASE EVENT DATE: 20240802
